FAERS Safety Report 8097324 (Version 4)
Quarter: 2012Q4

REPORT INFORMATION
  Report Type: 
  Country: JP (occurrence: US)
  Receive Date: 20110819
  Receipt Date: 20120828
  Transmission Date: 20130627
  Serious: Yes (Death, Hospitalization, Other)
  Sender: FDA-Public Use
  Company Number: US-RANBAXY-2011RR-46739

PATIENT
  Age: 73 None
  Sex: Female

DRUGS (33)
  1. LISINOPRIL [Suspect]
     Indication: PRODUCT USED FOR UNKNOWN INDICATION
     Dosage: UNK
     Route: 065
  2. FUROSEMIDE [Suspect]
     Indication: PRODUCT USED FOR UNKNOWN INDICATION
     Dosage: 20 mg, UNK
     Route: 065
  3. HYDROCHLOROTHIAZIDE [Suspect]
     Indication: PRODUCT USED FOR UNKNOWN INDICATION
     Dosage: UNK
     Route: 065
     Dates: start: 20110307
  4. LOSARTAN [Suspect]
     Indication: PRODUCT USED FOR UNKNOWN INDICATION
     Dosage: UNK
     Route: 065
  5. BENICAR [Suspect]
     Indication: HYPERTENSION
     Dosage: UNK
     Route: 048
     Dates: start: 2007
  6. NORVASC [Suspect]
     Indication: BLOOD PRESSURE INCREASED
     Dosage: 2.5 mg, qd
     Route: 048
     Dates: start: 20100719, end: 20100721
  7. NORVASC [Suspect]
     Dosage: 5 mg, qd
     Route: 048
     Dates: start: 1997
  8. NORVASC [Suspect]
     Dosage: 5 mg, bid
     Route: 048
     Dates: start: 2010
  9. NORVASC [Suspect]
     Dosage: 2.5 mg/day
     Route: 048
     Dates: start: 1994
  10. NORVASC [Suspect]
     Dosage: 0.5 DF/day
     Route: 048
  11. NORVASC [Suspect]
     Dosage: 0.5 DF/day
     Route: 048
     Dates: start: 20100722
  12. DILANTIN [Suspect]
     Indication: CONVULSION
     Dosage: UNK
     Route: 065
     Dates: start: 1995
  13. XANAX [Suspect]
     Indication: PRODUCT USED FOR UNKNOWN INDICATION
     Dosage: 0.5 DF, qd
     Route: 065
  14. CARDIZEM [Suspect]
     Indication: PRODUCT USED FOR UNKNOWN INDICATION
     Dosage: UNK
     Route: 065
  15. DEPAKOTE [Suspect]
     Indication: CONVULSION
     Dosage: UNK
     Route: 065
     Dates: start: 1995, end: 2004
  16. AVAPRO [Suspect]
     Indication: HYPERTENSION
     Dosage: UNK
     Route: 065
  17. BYSTOLIC [Suspect]
     Indication: PRODUCT USED FOR UNKNOWN INDICATION
     Dosage: UNK
     Route: 005
  18. MACROBID [Suspect]
     Indication: PRODUCT USED FOR UNKNOWN INDICATION
     Dosage: UNK
     Route: 065
  19. CIPRO [Suspect]
     Indication: PRODUCT USED FOR UNKNOWN INDICATION
     Dosage: UNK
     Route: 065
  20. BACTRIM [Suspect]
     Indication: PRODUCT USED FOR UNKNOWN INDICATION
     Dosage: UNK
     Route: 065
  21. REGLAN [Suspect]
     Indication: PRODUCT USED FOR UNKNOWN INDICATION
     Dosage: UNK
     Route: 065
  22. LEVAQUIN [Suspect]
     Indication: PRODUCT USED FOR UNKNOWN INDICATION
     Dosage: UNK
     Route: 065
  23. DIOVAN [Suspect]
     Indication: PRODUCT USED FOR UNKNOWN INDICATION
     Dosage: UNK
     Route: 065
  24. ATACAND [Suspect]
     Indication: RENAL DISORDER
     Dosage: 32 mg/day
     Route: 048
     Dates: start: 1995
  25. LIDOCAINE [Suspect]
     Indication: ANAESTHESIA
     Dosage: UNK
     Route: 065
     Dates: start: 20100513, end: 20100513
  26. LIDOCAINE [Suspect]
     Indication: INGROWING NAIL
  27. TOPROL [Suspect]
     Indication: HEART RATE ABNORMAL
     Dosage: 25 mg/day
     Route: 048
  28. TOPROL [Suspect]
     Indication: FLUSHING
  29. CACTUS [Suspect]
     Indication: MUSCULOSKELETAL PAIN
     Dosage: UNK
     Route: 065
     Dates: start: 2010
  30. CACTUS [Suspect]
     Indication: BLOOD TRIGLYCERIDES INCREASED
  31. CLONIDINE [Concomitant]
     Indication: BLOOD PRESSURE ABNORMAL
     Dosage: 0.5 mg, tid
     Route: 048
  32. LEVOTHYROXINE SODIUM [Concomitant]
     Indication: PRODUCT USED FOR UNKNOWN INDICATION
     Dosage: UNK
     Route: 065
  33. METOPROLOL SUCCINATE [Concomitant]
     Indication: PRODUCT USED FOR UNKNOWN INDICATION
     Route: 065

REACTIONS (39)
  - Blood pressure increased [Not Recovered/Not Resolved]
  - Loss of consciousness [Recovered/Resolved]
  - Cholecystectomy [Unknown]
  - Cystitis [Unknown]
  - Toe operation [Recovered/Resolved]
  - Palpitations [Recovered/Resolved]
  - Arteriosclerosis coronary artery [Unknown]
  - Ingrowing nail [Recovered/Resolved]
  - Weight decreased [Not Recovered/Not Resolved]
  - Abdominal distension [Recovered/Resolved]
  - Blood count abnormal [Unknown]
  - Headache [Recovered/Resolved]
  - Dizziness [Recovered/Resolved]
  - Anaemia [Unknown]
  - Burning sensation [Unknown]
  - Blood triglycerides increased [Unknown]
  - Hypoaesthesia [Unknown]
  - Platelet count decreased [Unknown]
  - Arterial occlusive disease [Unknown]
  - Carbuncle [Unknown]
  - Pulmonary mass [Unknown]
  - Gallbladder disorder [Unknown]
  - Convulsion [Unknown]
  - Fall [Unknown]
  - Abdominal pain [Unknown]
  - Hypertension [Not Recovered/Not Resolved]
  - Kidney infection [Unknown]
  - Micturition frequency decreased [Unknown]
  - Urinary incontinence [Unknown]
  - Nervousness [Unknown]
  - Feeling hot [Unknown]
  - Insomnia [Unknown]
  - Drug ineffective [Unknown]
  - Drug interaction [Unknown]
  - Myocardial calcification [None]
  - Palpitations [None]
  - Splenomegaly [None]
  - Drug hypersensitivity [None]
  - Blood pressure inadequately controlled [None]
